FAERS Safety Report 17236450 (Version 1)
Quarter: 2020Q1

REPORT INFORMATION
  Report Type: Spontaneous
  Country: US (occurrence: US)
  Receive Date: 20200106
  Receipt Date: 20200106
  Transmission Date: 20200409
  Serious: Yes (Other)
  Sender: FDA-Public Use
  Company Number: US-MSN LABORATORIES PRIVATE LIMITED-2078524

PATIENT
  Age: 56 Year
  Sex: Female
  Weight: 55.79 kg

DRUGS (1)
  1. PREGABALIN. [Suspect]
     Active Substance: PREGABALIN
     Indication: NEURALGIA
     Route: 048
     Dates: start: 20191125, end: 20191127

REACTIONS (12)
  - Nausea [Recovered/Resolved]
  - Drug effect faster than expected [Recovered/Resolved]
  - Therapeutic response shortened [Recovered/Resolved]
  - Condition aggravated [Recovering/Resolving]
  - Suspected product quality issue [Unknown]
  - Product substitution issue [Unknown]
  - Balance disorder [Recovered/Resolved]
  - Neuralgia [Recovering/Resolving]
  - Nervousness [Recovered/Resolved]
  - Rash [Unknown]
  - Withdrawal syndrome [Recovered/Resolved]
  - Headache [Recovered/Resolved]

NARRATIVE: CASE EVENT DATE: 201911
